FAERS Safety Report 9840200 (Version 3)
Quarter: 2014Q1

REPORT INFORMATION
  Report Type: Report from Study
  Country: US (occurrence: US)
  Receive Date: 20140124
  Receipt Date: 20140321
  Transmission Date: 20141002
  Serious: Yes (Death, Hospitalization, Other)
  Sender: FDA-Public Use
  Company Number: US-ROCHE-1337840

PATIENT
  Age: 50 Year
  Sex: Female
  Weight: 62.83 kg

DRUGS (10)
  1. HERCEPTIN [Suspect]
     Indication: BREAST CANCER FEMALE
     Route: 042
     Dates: start: 20110804, end: 20120726
  2. HERCEPTIN [Suspect]
     Route: 042
     Dates: end: 20120816
  3. CARBOPLATIN [Concomitant]
     Dosage: 6 AUC/ DAY 1 OF CYCLE 8 21 DAYS
     Route: 042
     Dates: end: 20120816
  4. CARBOPLATIN [Concomitant]
     Route: 042
     Dates: start: 20110804, end: 20111116
  5. DOCETAXEL [Concomitant]
     Route: 042
     Dates: end: 20120816
  6. DOCETAXEL [Concomitant]
     Route: 042
     Dates: start: 20110804, end: 20111116
  7. NEULASTA [Concomitant]
     Indication: WHITE BLOOD CELL COUNT DECREASED
     Route: 058
     Dates: start: 20110805, end: 20111117
  8. DEXAMETHASONE [Concomitant]
     Route: 042
     Dates: end: 20120816
  9. DEXAMETHASONE [Concomitant]
     Route: 042
     Dates: start: 20110804, end: 20111116
  10. CYANOCOBALAMIN [Concomitant]
     Route: 048

REACTIONS (13)
  - Death [Fatal]
  - Gastrointestinal haemorrhage [Unknown]
  - Encephalopathy [Unknown]
  - Coma [Unknown]
  - Respiratory failure [Unknown]
  - Pneumonia [Unknown]
  - Staphylococcal infection [Unknown]
  - Anaemia [Unknown]
  - Palpitations [Unknown]
  - Dyspnoea [Recovered/Resolved]
  - Diarrhoea [Recovered/Resolved]
  - Fatigue [Recovered/Resolved]
  - Lymphoedema [Recovered/Resolved]
